FAERS Safety Report 17207667 (Version 1)
Quarter: 2019Q4

REPORT INFORMATION
  Report Type: Spontaneous
  Country: US (occurrence: US)
  Receive Date: 20191227
  Receipt Date: 20191227
  Transmission Date: 20200122
  Serious: Yes (Other)
  Sender: FDA-Public Use
  Company Number: US-APOTEX-2019AP026595

PATIENT
  Age: 16 Year
  Sex: Male

DRUGS (1)
  1. DIVALPROEX SODIUM. [Suspect]
     Active Substance: DIVALPROEX SODIUM
     Indication: EPILEPSY
     Dosage: 1000 MG, Q.H.S.
     Route: 048

REACTIONS (4)
  - Anticonvulsant drug level decreased [Recovered/Resolved]
  - Drug interaction [Unknown]
  - Seizure [Unknown]
  - Herbal interaction [Unknown]
